FAERS Safety Report 5248070-5 (Version None)
Quarter: 2007Q1

REPORT INFORMATION
  Report Type: 
  Country: None (occurrence: None)
  Receive Date: 20070222
  Receipt Date: 20070205
  Transmission Date: 20070707
  Serious: Yes (Other)
  Sender: FDA-Public Use
  Company Number: 2007000234

PATIENT
  Sex: Male

DRUGS (1)
  1. TARCEVA [Suspect]
     Dosage: SEE IMAGE
     Route: 048

REACTIONS (4)
  - GLOSSODYNIA [None]
  - INTRACRANIAL PRESSURE INCREASED [None]
  - RASH MACULAR [None]
  - TINNITUS [None]
